FAERS Safety Report 9412649 (Version 1)
Quarter: 2013Q3

REPORT INFORMATION
  Report Type: Spontaneous
  Country: FR (occurrence: FR)
  Receive Date: 20130722
  Receipt Date: 20130722
  Transmission Date: 20140515
  Serious: Yes (Hospitalization)
  Sender: FDA-Public Use
  Company Number: FR-PFIZER INC-2013210019

PATIENT
  Age: 57 Year
  Sex: Male

DRUGS (10)
  1. ZYVOXID [Suspect]
     Indication: CHRONIC SINUSITIS
     Dosage: UNK
     Dates: start: 20130207, end: 20130225
  2. TAZOCILLINE [Suspect]
     Indication: CHRONIC SINUSITIS
     Dosage: UNK
     Dates: start: 20130207, end: 20130222
  3. CERTICAN [Suspect]
     Dosage: 0.75 MG, 2X/DAY
     Dates: start: 201202, end: 201303
  4. PROGRAF [Concomitant]
     Dosage: 1 MG, 2X/DAY
  5. PRAVASTATIN [Concomitant]
  6. ASPIRINE [Concomitant]
     Dosage: 1 DF/DAY
  7. COVERSYL [Concomitant]
     Dosage: 1 DF/DAY
  8. ESOMEPRAZOLE [Concomitant]
     Dosage: 40 MG/DAY
  9. PREDNISONE [Concomitant]
     Dosage: 5 MG/DAY
  10. CLAMOXYL [Concomitant]
     Indication: DENTAL CARE

REACTIONS (3)
  - Anaemia [Recovered/Resolved]
  - Renal failure [Recovered/Resolved]
  - Microangiopathy [Recovered/Resolved]
